FAERS Safety Report 18017080 (Version 1)
Quarter: 2020Q3

REPORT INFORMATION
  Report Type: Spontaneous
  Country: DE (occurrence: DE)
  Receive Date: 20200713
  Receipt Date: 20200713
  Transmission Date: 20201103
  Serious: Yes (Other)
  Sender: FDA-Public Use
  Company Number: DE-ROCHE-2639336

PATIENT
  Age: 62 Year
  Sex: Female

DRUGS (1)
  1. MABTHERA [Suspect]
     Active Substance: RITUXIMAB
     Indication: NEUROPSYCHIATRIC LUPUS
     Route: 065
     Dates: start: 20200601

REACTIONS (5)
  - Off label use [Unknown]
  - Intentional product use issue [Unknown]
  - Gliosis [Not Recovered/Not Resolved]
  - Neuropsychiatric lupus [Not Recovered/Not Resolved]
  - Muscle twitching [Not Recovered/Not Resolved]
